FAERS Safety Report 13074617 (Version 1)
Quarter: 2016Q4

REPORT INFORMATION
  Report Type: Report from Study
  Country: US (occurrence: US)
  Receive Date: 20161230
  Receipt Date: 20161230
  Transmission Date: 20170207
  Serious: Yes (Death, Hospitalization)
  Sender: FDA-Public Use
  Company Number: US-ROCHE-1812605

PATIENT
  Age: 62 Year
  Sex: Female
  Weight: 77.7 kg

DRUGS (18)
  1. CLARITIN (UNITED STATES) [Concomitant]
     Route: 048
  2. ZARXIO [Concomitant]
     Active Substance: FILGRASTIM-SNDZ
     Dosage: 480 MCG/0.8 ML , TO USE ON DAY 6 AFTER DAY 1 OF CHEMOTHERAPY
     Route: 058
  3. OXYCONTIN [Concomitant]
     Active Substance: OXYCODONE HYDROCHLORIDE
     Indication: NAUSEA
     Route: 049
  4. ZOFRAN [Concomitant]
     Active Substance: ONDANSETRON HYDROCHLORIDE
     Indication: NAUSEA
     Route: 048
  5. LACTULOSE. [Concomitant]
     Active Substance: LACTULOSE
     Dosage: 3 DOSES DAILY
     Route: 048
  6. POTASSIUM CHLORIDE. [Concomitant]
     Active Substance: POTASSIUM CHLORIDE
     Dosage: 1 TABLET
     Route: 048
  7. DOCUSATE-SENNA [Concomitant]
     Indication: CONSTIPATION
     Dosage: 2 TABLETS, BEDTIME
     Route: 048
  8. OMEPRAZOLE. [Concomitant]
     Active Substance: OMEPRAZOLE
     Dosage: 1 TABLET DAILY AS REQUIRED
     Route: 048
  9. GEMCITABINE [Concomitant]
     Active Substance: GEMCITABINE\GEMCITABINE HYDROCHLORIDE
     Dosage: 18 DOSES
     Route: 065
  10. OXYCODONE [Concomitant]
     Active Substance: OXYCODONE
     Indication: PAIN
     Dosage: 1 TABLET
     Route: 048
  11. PERTUZUMAB [Suspect]
     Active Substance: PERTUZUMAB
     Indication: HER-2 POSITIVE BREAST CANCER
     Dosage: LOADING DOSE CYCLE 1 DAY 1
     Route: 042
     Dates: start: 20160512, end: 20160512
  12. TRASTUZUMAB [Suspect]
     Active Substance: TRASTUZUMAB
     Indication: HER-2 POSITIVE BREAST CANCER
     Dosage: LOADING DOSE CYCLE 1 DAY 1
     Route: 042
     Dates: start: 20160512, end: 20160512
  13. LEVOFLOXACIN. [Concomitant]
     Active Substance: LEVOFLOXACIN
     Route: 048
  14. TRASTUZUMAB [Suspect]
     Active Substance: TRASTUZUMAB
     Dosage: MOST RECENT DOSE OF TRASTUZUMAB ON 23/NOV/2016?10 DOSES
     Route: 042
     Dates: start: 20160602
  15. PERTUZUMAB [Suspect]
     Active Substance: PERTUZUMAB
     Dosage: MOST RECENT DOSE OF PERTUZUMAB ON 23/NOV/2016??10 DOSES
     Route: 042
     Dates: start: 20160602
  16. SIMETHICONE (DIMETHICONE) [Concomitant]
     Active Substance: DIMETHICONE
     Indication: FLATULENCE
     Dosage: AS REQUIRED??1-2 CHEWABLE TABLET AS NEEDED
     Route: 048
  17. OXYCODONE [Concomitant]
     Active Substance: OXYCODONE
     Route: 048
  18. ONDANSETRON [Concomitant]
     Active Substance: ONDANSETRON
     Route: 048

REACTIONS (4)
  - Death [Fatal]
  - Cough [Unknown]
  - Pneumonia [Unknown]
  - Pyrexia [Unknown]

NARRATIVE: CASE EVENT DATE: 20160806
